FAERS Safety Report 5206285-6 (Version None)
Quarter: 2007Q1

REPORT INFORMATION
  Report Type: 
  Country: None (occurrence: None)
  Receive Date: 20070111
  Receipt Date: 20070103
  Transmission Date: 20070707
  Serious: Yes (Other)
  Sender: FDA-Public Use
  Company Number: CA-PFIZER INC-2006154800

PATIENT
  Sex: Female
  Weight: 67.6 kg

DRUGS (6)
  1. ZOLOFT [Suspect]
     Indication: DEPRESSION
     Dosage: DAILY DOSE:200MG
     Route: 048
  2. REMERON [Suspect]
     Indication: DEPRESSION
     Dosage: DAILY DOSE:60MG
     Route: 048
  3. TOPAMAX [Suspect]
     Indication: DECREASED APPETITE
     Dosage: DAILY DOSE:150MG
     Route: 048
  4. CLONAZEPAM [Concomitant]
     Route: 048
  5. NUVARING [Concomitant]
     Route: 067
  6. ALL OTHER THERAPEUTIC PRODUCTS [Concomitant]

REACTIONS (10)
  - CONJUNCTIVITIS ALLERGIC [None]
  - EAR DISCOMFORT [None]
  - EAR INFECTION [None]
  - FATIGUE [None]
  - FOOD ALLERGY [None]
  - NASAL CONGESTION [None]
  - RHINITIS [None]
  - SEXUAL DYSFUNCTION [None]
  - TINNITUS [None]
  - WEIGHT INCREASED [None]
